FAERS Safety Report 6151070-4 (Version None)
Quarter: 2009Q2

REPORT INFORMATION
  Report Type: 
  Country: None (occurrence: None)
  Receive Date: 20090410
  Receipt Date: 20090401
  Transmission Date: 20091009
  Serious: Yes (Hospitalization)
  Sender: FDA-Public Use
  Company Number: FR-JNJFOC-20090205597

PATIENT
  Sex: Female
  Weight: 37 kg

DRUGS (5)
  1. EPITOMAX [Suspect]
     Indication: MIGRAINE PROPHYLAXIS
     Route: 048
  2. BIPROFENID [Suspect]
     Indication: HEADACHE
     Route: 048
  3. ALMOGRAN [Suspect]
     Indication: HEADACHE
  4. ADVIL [Concomitant]
     Indication: MENSTRUAL DISORDER
  5. NORSET [Concomitant]

REACTIONS (13)
  - AMENORRHOEA [None]
  - ANOREXIA [None]
  - ASTHENIA [None]
  - CONSTIPATION [None]
  - GASTRITIS [None]
  - GENERAL PHYSICAL HEALTH DETERIORATION [None]
  - HEPATIC CALCIFICATION [None]
  - NEPHROLITHIASIS [None]
  - POLYDIPSIA [None]
  - POLYURIA [None]
  - SLEEP DISORDER [None]
  - ULCER [None]
  - WEIGHT DECREASED [None]
